FAERS Safety Report 24152137 (Version 1)
Quarter: 2024Q3

REPORT INFORMATION
  Report Type: Report from Study
  Country: CA (occurrence: CA)
  Receive Date: 20240730
  Receipt Date: 20240730
  Transmission Date: 20241016
  Serious: Yes (Other)
  Sender: BIOCON
  Company Number: CA-BIOCON BIOLOGICS LIMITED-BBL2024005475

PATIENT

DRUGS (1)
  1. HULIO [Suspect]
     Active Substance: ADALIMUMAB-FKJP
     Indication: Ankylosing spondylitis
     Dosage: 40 MILLIGRAM, 2 EVERY 1 WEEKS, SOLUTION
     Route: 058

REACTIONS (7)
  - Blister [Unknown]
  - Treatment noncompliance [Unknown]
  - Ankylosing spondylitis [Unknown]
  - Visual impairment [Unknown]
  - Alopecia [Unknown]
  - Wrong technique in product usage process [Unknown]
  - Product dose omission issue [Unknown]
